FAERS Safety Report 7562068-3 (Version None)
Quarter: 2011Q2

REPORT INFORMATION
  Report Type: 
  Country: None (occurrence: None)
  Receive Date: 20110622
  Receipt Date: 20090728
  Transmission Date: 20111010
  Serious: Yes (Death)
  Sender: FDA-Public Use
  Company Number: PHHY2009DE68661

PATIENT
  Sex: Male
  Weight: 175 kg

DRUGS (5)
  1. NOVORAPID [Concomitant]
  2. SANDOSTATIN LAR [Suspect]
     Indication: PANCREATIC NEUROENDOCRINE TUMOUR
     Dosage: 30 MG
     Route: 030
     Dates: start: 20090421
  3. PROTAPHANE [Concomitant]
  4. ENOXAPARIN SODIUM [Concomitant]
  5. OMEPRAZOLE [Concomitant]

REACTIONS (4)
  - NAUSEA [None]
  - DIARRHOEA [None]
  - ABDOMINAL PAIN [None]
  - DEATH [None]
